FAERS Safety Report 8990356 (Version 1)
Quarter: 2012Q4

REPORT INFORMATION
  Report Type: Report from Study
  Country: AT (occurrence: AT)
  Receive Date: 20121228
  Receipt Date: 20121228
  Transmission Date: 20130627
  Serious: Yes (Hospitalization)
  Sender: FDA-Public Use
  Company Number: AT-ABBOTT-12P-009-1023853-00

PATIENT
  Age: 83 Year
  Sex: Male
  Weight: 49 kg

DRUGS (23)
  1. ZEMPLAR [Suspect]
     Indication: HYPERPARATHYROIDISM SECONDARY
     Route: 042
     Dates: start: 20110924
  2. ZEMPLAR [Suspect]
     Dates: start: 20120322
  3. ZEMPLAR [Suspect]
     Dates: start: 20120621
  4. APREDNISOLON [Concomitant]
     Indication: PRODUCT USED FOR UNKNOWN INDICATION
     Dosage: 2-0-0/1-0-0
     Dates: start: 20110927
  5. APREDNISOLON [Concomitant]
     Dosage: 1-0-0
     Dates: start: 20111029
  6. NEXIUM [Concomitant]
     Indication: PRODUCT USED FOR UNKNOWN INDICATION
     Dosage: 1-0-0
     Route: 048
     Dates: start: 20110924, end: 20120823
  7. THYREX [Concomitant]
     Indication: PRODUCT USED FOR UNKNOWN INDICATION
     Dosage: 1-0-0
     Route: 048
  8. THROMBO ASS [Concomitant]
     Indication: PRODUCT USED FOR UNKNOWN INDICATION
     Dosage: 0-1-0
     Route: 048
  9. CONCOR [Concomitant]
     Indication: PRODUCT USED FOR UNKNOWN INDICATION
     Dosage: 0-1-0
     Route: 048
  10. ATACAND [Concomitant]
     Indication: PRODUCT USED FOR UNKNOWN INDICATION
     Dosage: 0-0-1
     Route: 048
     Dates: start: 20120105
  11. ATACAND [Concomitant]
     Dosage: 0-0-1
     Dates: start: 20120522, end: 20120602
  12. DANCOR [Concomitant]
     Indication: PRODUCT USED FOR UNKNOWN INDICATION
     Dosage: 1-0-1
     Route: 048
     Dates: start: 20120322
  13. NEURONTIN [Concomitant]
     Indication: PRODUCT USED FOR UNKNOWN INDICATION
     Dosage: 1-0-0/0-0-0
     Route: 048
  14. TRITTICO [Concomitant]
     Indication: PRODUCT USED FOR UNKNOWN INDICATION
     Dosage: 0-0-2/3
     Route: 048
  15. ARANESP [Concomitant]
     Indication: PRODUCT USED FOR UNKNOWN INDICATION
     Route: 042
  16. ARANESP [Concomitant]
     Dates: start: 20111103
  17. ARANESP [Concomitant]
     Dates: start: 20120314
  18. FERRLECIT [Concomitant]
     Indication: PRODUCT USED FOR UNKNOWN INDICATION
     Route: 042
     Dates: end: 20120124
  19. OLEOVIT D3 [Concomitant]
     Indication: PRODUCT USED FOR UNKNOWN INDICATION
     Dosage: 10gtt/week
     Route: 048
     Dates: start: 20120207
  20. GUTRON [Concomitant]
     Indication: PRODUCT USED FOR UNKNOWN INDICATION
     Dosage: 7 ggt-7 ggt-0
     Route: 048
     Dates: start: 20120625
  21. GUTRON [Concomitant]
     Dosage: 15 ggt -15 ggt-0
     Route: 048
     Dates: start: 20120207
  22. PANTOLOC [Concomitant]
     Indication: PRODUCT USED FOR UNKNOWN INDICATION
     Dosage: 1-0-0
     Route: 048
     Dates: start: 20120823
  23. TARGOCID [Concomitant]
     Indication: PRODUCT USED FOR UNKNOWN INDICATION
     Route: 042
     Dates: start: 20120904

REACTIONS (5)
  - Syncope [Not Recovered/Not Resolved]
  - Skin injury [Not Recovered/Not Resolved]
  - Fall [Not Recovered/Not Resolved]
  - Syncope [Not Recovered/Not Resolved]
  - Fatigue [Unknown]
